FAERS Safety Report 5844323-8 (Version None)
Quarter: 2008Q3

REPORT INFORMATION
  Report Type: 
  Country: None (occurrence: None)
  Receive Date: 20080731
  Receipt Date: 20080428
  Transmission Date: 20090109
  Serious: No
  Sender: FDA-Public Use
  Company Number: US200804007058

PATIENT
  Age: 23 Year
  Sex: Female
  Weight: 49.9 kg

DRUGS (6)
  1. BYETTA [Suspect]
     Indication: DIABETES MELLITUS
     Dates: start: 20071201
  2. EXENATIDE PEN, DISPOSABLE DEVICE (EXENATIDE PEN) PEN,DISPOSABLE [Concomitant]
  3. PROMETRIUM [Concomitant]
  4. THYROID TAB [Concomitant]
  5. NOVOLOG [Concomitant]
  6. VITAMINS [Concomitant]

REACTIONS (3)
  - MYDRIASIS [None]
  - PHOTOPHOBIA [None]
  - VISION BLURRED [None]
